FAERS Safety Report 7487467-X (Version None)
Quarter: 2011Q2

REPORT INFORMATION
  Report Type: 
  Country: None (occurrence: None)
  Receive Date: 20110510
  Receipt Date: 20110428
  Transmission Date: 20111010
  Serious: Yes (Hospitalization)
  Sender: FDA-Public Use
  Company Number: PL-JNJFOC-20090305006

PATIENT
  Age: 67 Year
  Sex: Female
  Weight: 73.4 kg

DRUGS (7)
  1. SALMETEROL (SALMETEROL) INHALATION [Concomitant]
  2. ESTRIOL (ESTRIOL) UNSPECIFIED [Concomitant]
  3. ALLOPURINOL (ALLOPURINOL) UNSPECIFIED [Concomitant]
  4. TIBOLONE (TIBOLONE) UNSPECIFIED [Concomitant]
  5. DECITABINE [Suspect]
     Indication: ACUTE MYELOID LEUKAEMIA
     Dosage: 20 MG/M2, 1 IN 1 DAY, INTRAVENOUS
     Route: 042
     Dates: start: 20090226, end: 20090302
  6. DECITABINE [Suspect]
     Indication: ACUTE MYELOID LEUKAEMIA
     Dosage: 20 MG/M2, 1 IN 1 DAY, INTRAVENOUS
     Route: 042
     Dates: start: 20090331, end: 20090404
  7. CICLESONIDE (CICLESONIDE) INHALATION [Concomitant]

REACTIONS (2)
  - FEBRILE NEUTROPENIA [None]
  - ORAL HERPES [None]
